FAERS Safety Report 8571585-9 (Version None)
Quarter: 2012Q3

REPORT INFORMATION
  Report Type: 
  Country: None (occurrence: None)
  Receive Date: 20120806
  Receipt Date: 20120801
  Transmission Date: 20120928
  Serious: Yes (Other)
  Sender: FDA-Public Use
  Company Number: PHEH2012US015101

PATIENT
  Sex: Female

DRUGS (5)
  1. WELLBUTRIN [Concomitant]
     Dosage: 150 MG, UNK
  2. KLONOPIN [Concomitant]
     Dosage: 2.5 MG, UNK
  3. TOPAMAX [Concomitant]
     Dosage: 200 MG, UNK
  4. VIVELLE-DOT [Suspect]
     Indication: MENOPAUSE
     Dosage: 0.05 TWICE A WEEK
     Route: 062
  5. THYROID TAB [Concomitant]
     Dosage: 60 MG, UNK

REACTIONS (4)
  - CONDITION AGGRAVATED [None]
  - COGNITIVE DISORDER [None]
  - MEMORY IMPAIRMENT [None]
  - APHASIA [None]
